FAERS Safety Report 9112017 (Version 1)
Quarter: 2013Q1

REPORT INFORMATION
  Report Type: Spontaneous
  Country: US (occurrence: US)
  Receive Date: 20130219
  Receipt Date: 20130219
  Transmission Date: 20140127
  Serious: No
  Sender: FDA-Public Use
  Company Number: US-BRISTOL-MYERS SQUIBB COMPANY-17052457

PATIENT
  Age: 56 Year
  Sex: Female
  Weight: 132.88 kg

DRUGS (2)
  1. ABATACEPT SUBQ INJECTION 125MG/ML [Suspect]
     Indication: RHEUMATOID ARTHRITIS
     Dosage: LAST DOSE:12OCT2012?BEFORE SHE WAS ON ORENCIA IV
     Route: 058
  2. ORENCIA [Suspect]

REACTIONS (3)
  - Fatigue [Recovering/Resolving]
  - Therapeutic response decreased [Unknown]
  - Weight increased [Recovering/Resolving]
